FAERS Safety Report 14341087 (Version 1)
Quarter: 2018Q1

REPORT INFORMATION
  Report Type: Spontaneous
  Country: RU (occurrence: RU)
  Receive Date: 20180102
  Receipt Date: 20180102
  Transmission Date: 20180509
  Serious: Yes (Other)
  Sender: FDA-Public Use
  Company Number: RU-ROCHE-2047586

PATIENT
  Age: 24 Day
  Sex: Male

DRUGS (1)
  1. CYMEVENE [Suspect]
     Active Substance: GANCICLOVIR
     Indication: CONGENITAL CYTOMEGALOVIRUS INFECTION
     Route: 042
     Dates: start: 20171025, end: 20171030

REACTIONS (3)
  - Intentional product use issue [Unknown]
  - Leukopenia neonatal [Unknown]
  - Off label use [Unknown]
